FAERS Safety Report 7604097-7 (Version None)
Quarter: 2011Q3

REPORT INFORMATION
  Report Type: 
  Country: None (occurrence: None)
  Receive Date: 20110711
  Receipt Date: 20110711
  Transmission Date: 20111222
  Serious: Yes (Other)
  Sender: FDA-Public Use
  Company Number: None

PATIENT
  Age: 28 Year
  Sex: Male
  Weight: 70.3075 kg

DRUGS (1)
  1. PROSCAR [Suspect]
     Indication: ALOPECIA
     Dosage: 2.5G ONCE A DAY BUCCAL
     Route: 002
     Dates: start: 20081015, end: 20081115

REACTIONS (8)
  - DRY SKIN [None]
  - ABDOMINAL PAIN [None]
  - LIBIDO DECREASED [None]
  - GASTRIC DISORDER [None]
  - QUALITY OF LIFE DECREASED [None]
  - BLADDER DISORDER [None]
  - PALPITATIONS [None]
  - FEELING ABNORMAL [None]
